FAERS Safety Report 18194612 (Version 2)
Quarter: 2020Q3

REPORT INFORMATION
  Report Type: Other
  Country: AU (occurrence: AU)
  Receive Date: 20200825
  Receipt Date: 20200828
  Transmission Date: 20201103
  Serious: Yes (Death, Life-Threatening)
  Sender: FDA-Public Use
  Company Number: AU-ROCHE-2664567

PATIENT

DRUGS (1)
  1. METALYSE [Suspect]
     Active Substance: TENECTEPLASE
     Indication: ISCHAEMIC STROKE
     Dosage: IV TENECTEPLASE (0.25 MG/KG BOLUS)
     Route: 042

REACTIONS (3)
  - Cardiac arrest [Fatal]
  - Drug ineffective [Unknown]
  - Hypotension [Fatal]
